FAERS Safety Report 8990094 (Version 2)
Quarter: 2013Q1

REPORT INFORMATION
  Report Type: Spontaneous
  Country: US (occurrence: US)
  Receive Date: 20121228
  Receipt Date: 20130109
  Transmission Date: 20140127
  Serious: Yes (Hospitalization)
  Sender: FDA-Public Use
  Company Number: PHHY2012US119068

PATIENT
  Age: 53 Year
  Sex: Female

DRUGS (8)
  1. DIGOXIN [Suspect]
     Indication: SUICIDAL IDEATION
     Dosage: UNK UKN, UNK
  2. DIGOXIN [Suspect]
     Dosage: 0.5 MG, DAY
  3. NIFEDIPINE [Concomitant]
     Dosage: 60 MG, DAY
  4. PROPAFENONE [Concomitant]
     Dosage: 150 MG, DAY
  5. HYDROCHLOROTHIAZIDE [Concomitant]
     Dosage: 25 MG, DAY
  6. ROSUVASTATIN [Concomitant]
     Dosage: 20 MG, DAY
  7. PHENYTOIN [Concomitant]
     Dosage: 100 MG, TID
  8. ALBUTEROL [Concomitant]

REACTIONS (16)
  - Toxicity to various agents [Unknown]
  - Atrioventricular block [Unknown]
  - Ventricular extrasystoles [Unknown]
  - Sinoatrial block [Unknown]
  - Suicide attempt [Unknown]
  - Sinus arrest [Recovered/Resolved]
  - Atrial tachycardia [Recovered/Resolved]
  - Atrial fibrillation [Unknown]
  - Ventricular fibrillation [Unknown]
  - Ventricular tachycardia [Unknown]
  - Intentional overdose [Unknown]
  - Cardiac murmur [Unknown]
  - Mental status changes [Unknown]
  - Electrocardiogram ST segment depression [Unknown]
  - Respiratory acidosis [Unknown]
  - Somnolence [Unknown]
